FAERS Safety Report 23504574 (Version 1)
Quarter: 2024Q1

REPORT INFORMATION
  Report Type: Spontaneous
  Country: US (occurrence: None)
  Receive Date: 20240208
  Receipt Date: 20240208
  Transmission Date: 20240410
  Serious: Yes (Death)
  Sender: FDA-Public Use
  Company Number: None

PATIENT
  Age: 27 Day
  Sex: Male
  Weight: 3.15 kg

DRUGS (2)
  1. BEYFORTUS [Suspect]
     Active Substance: NIRSEVIMAB-ALIP
     Indication: Antiviral prophylaxis
     Dosage: OTHER QUANTITY : 1 INJECTION(S);?
     Route: 058
     Dates: start: 20231019, end: 20231019
  2. Hep B [Concomitant]

REACTIONS (2)
  - Pulmonary oedema [None]
  - Unresponsive to stimuli [None]

NARRATIVE: CASE EVENT DATE: 20231022
